FAERS Safety Report 9825244 (Version 1)
Quarter: 2013Q4

REPORT INFORMATION
  Report Type: Spontaneous
  Country: US (occurrence: None)
  Receive Date: 20131028
  Receipt Date: 20131028
  Transmission Date: 20140711
  Serious: Yes (Other)
  Sender: FDA-Public Use
  Company Number: 2013US001832

PATIENT
  Age: 75 Year
  Sex: Male
  Weight: 92 kg

DRUGS (3)
  1. ICLUSIG [Suspect]
     Indication: CHRONIC MYELOID LEUKAEMIA
     Dosage: 15 MG, QD, ORAL
     Route: 048
     Dates: start: 20130608
  2. TRAZODONE (TRAZODONE) [Concomitant]
  3. PROZAC (FLUOXETINE HYDROCHLORIDE) [Concomitant]

REACTIONS (2)
  - Blood pressure increased [None]
  - Headache [None]
